FAERS Safety Report 10815199 (Version 5)
Quarter: 2017Q3

REPORT INFORMATION
  Report Type: Spontaneous
  Country: US (occurrence: US)
  Receive Date: 20150218
  Receipt Date: 20170804
  Transmission Date: 20171127
  Serious: No
  Sender: FDA-Public Use
  Company Number: US-ASTRAZENECA-2014SE73845

PATIENT
  Age: 734 Month
  Sex: Female
  Weight: 70.3 kg

DRUGS (35)
  1. BYDUREON [Suspect]
     Active Substance: EXENATIDE
     Indication: TYPE 2 DIABETES MELLITUS
     Route: 058
     Dates: start: 20140321
  2. BYDUREON [Suspect]
     Active Substance: EXENATIDE
     Indication: TYPE 2 DIABETES MELLITUS
     Route: 058
  3. OMEPRAZOLE. [Concomitant]
     Active Substance: OMEPRAZOLE
  4. LOSARTAN. [Concomitant]
     Active Substance: LOSARTAN
  5. STARLIX [Concomitant]
     Active Substance: NATEGLINIDE
     Dosage: UNK, AS REQUIRED
     Route: 048
  6. FLUOXETINE [Concomitant]
     Active Substance: FLUOXETINE HYDROCHLORIDE
  7. FERROUS SULFATE. [Concomitant]
     Active Substance: FERROUS SULFATE
  8. LIPITOR [Concomitant]
     Active Substance: ATORVASTATIN CALCIUM
     Route: 048
  9. BYDUREON [Suspect]
     Active Substance: EXENATIDE
     Indication: TYPE 2 DIABETES MELLITUS
     Route: 058
     Dates: start: 2012, end: 2014
  10. BYDUREON [Suspect]
     Active Substance: EXENATIDE
     Indication: TYPE 2 DIABETES MELLITUS
     Route: 058
     Dates: start: 201210
  11. BYETTA [Suspect]
     Active Substance: EXENATIDE
     Indication: TYPE 2 DIABETES MELLITUS
     Route: 058
  12. NEXIUM [Suspect]
     Active Substance: ESOMEPRAZOLE MAGNESIUM
     Indication: GASTROOESOPHAGEAL REFLUX DISEASE
     Route: 048
     Dates: start: 2001
  13. VITAMIN D [Concomitant]
     Active Substance: CHOLECALCIFEROL
  14. STARLIX [Concomitant]
     Active Substance: NATEGLINIDE
     Route: 048
  15. MULTIVITAMIN [Concomitant]
     Active Substance: VITAMINS
  16. BYDUREON [Suspect]
     Active Substance: EXENATIDE
     Indication: TYPE 2 DIABETES MELLITUS
     Route: 058
     Dates: start: 201208, end: 201208
  17. IRON [Concomitant]
     Active Substance: IRON
  18. ESTRADIOL. [Concomitant]
     Active Substance: ESTRADIOL
  19. LEVOTHYROXINE. [Concomitant]
     Active Substance: LEVOTHYROXINE
  20. LIPITOR [Concomitant]
     Active Substance: ATORVASTATIN CALCIUM
  21. BYDUREON [Suspect]
     Active Substance: EXENATIDE
     Indication: TYPE 2 DIABETES MELLITUS
     Route: 058
     Dates: start: 2012
  22. BYDUREON [Suspect]
     Active Substance: EXENATIDE
     Indication: TYPE 2 DIABETES MELLITUS
     Route: 058
  23. BYETTA [Suspect]
     Active Substance: EXENATIDE
     Indication: TYPE 2 DIABETES MELLITUS
     Route: 058
  24. METFORMIN [Concomitant]
     Active Substance: METFORMIN HYDROCHLORIDE
     Route: 048
  25. FISH OIL [Concomitant]
     Active Substance: FISH OIL
  26. GLIMEPIRIDE. [Concomitant]
     Active Substance: GLIMEPIRIDE
     Route: 048
  27. PIOGLITAZONE. [Concomitant]
     Active Substance: PIOGLITAZONE
  28. VITAMIN C [Concomitant]
     Active Substance: ASCORBIC ACID
  29. TUMS [Concomitant]
     Active Substance: CALCIUM CARBONATE
  30. BYETTA [Suspect]
     Active Substance: EXENATIDE
     Indication: TYPE 2 DIABETES MELLITUS
     Route: 058
     Dates: start: 20060321
  31. NEXIUM [Suspect]
     Active Substance: ESOMEPRAZOLE MAGNESIUM
     Indication: GASTROOESOPHAGEAL REFLUX DISEASE
     Route: 048
  32. ASPIRIN. [Concomitant]
     Active Substance: ASPIRIN
  33. CALCIUM [Concomitant]
     Active Substance: CALCIUM
  34. BYETTA [Suspect]
     Active Substance: EXENATIDE
     Indication: TYPE 2 DIABETES MELLITUS
     Route: 058
     Dates: start: 2006
  35. BYETTA [Suspect]
     Active Substance: EXENATIDE
     Indication: TYPE 2 DIABETES MELLITUS
     Route: 058
     Dates: start: 20140321

REACTIONS (23)
  - Skin discolouration [Unknown]
  - Tremor [Recovered/Resolved]
  - Early satiety [Unknown]
  - Irritable bowel syndrome [Unknown]
  - Hunger [Unknown]
  - Nausea [Unknown]
  - Intentional device misuse [Not Recovered/Not Resolved]
  - Weight increased [Unknown]
  - Gastrooesophageal reflux disease [Unknown]
  - Incorrect dose administered [Not Recovered/Not Resolved]
  - Accidental overdose [Unknown]
  - Diabetes mellitus inadequate control [Unknown]
  - Injection site extravasation [Unknown]
  - Injection site haemorrhage [Unknown]
  - Underdose [Unknown]
  - Device malfunction [Unknown]
  - Body height decreased [Not Recovered/Not Resolved]
  - Extra dose administered [Unknown]
  - Drug ineffective [Unknown]
  - Injection site pain [Recovered/Resolved]
  - Vessel puncture site pain [Unknown]
  - Dyspepsia [Unknown]
  - Intentional product misuse [Unknown]

NARRATIVE: CASE EVENT DATE: 200603
